FAERS Safety Report 12731205 (Version 1)
Quarter: 2016Q3

REPORT INFORMATION
  Report Type: Spontaneous
  Country: US (occurrence: US)
  Receive Date: 20160912
  Receipt Date: 20160912
  Transmission Date: 20161109
  Serious: No
  Sender: FDA-Public Use
  Company Number: US-ASTRAZENECA-2016SE79449

PATIENT
  Age: 16950 Day
  Sex: Female
  Weight: 74.8 kg

DRUGS (1)
  1. ZOMIG [Suspect]
     Active Substance: ZOLMITRIPTAN
     Indication: MIGRAINE
     Dosage: DAILY
     Route: 048
     Dates: start: 20160418

REACTIONS (5)
  - Feeling abnormal [Unknown]
  - Pelvic pain [Unknown]
  - Headache [Unknown]
  - Hypertension [Unknown]
  - Back pain [Unknown]

NARRATIVE: CASE EVENT DATE: 20160417
